FAERS Safety Report 9406340 (Version 3)
Quarter: 2013Q3

REPORT INFORMATION
  Report Type: Spontaneous
  Country: RS (occurrence: RS)
  Receive Date: 20130717
  Receipt Date: 20130825
  Transmission Date: 20140515
  Serious: Yes (Other)
  Sender: FDA-Public Use
  Company Number: RS-ROCHE-1248948

PATIENT
  Age: 66 Year
  Sex: Male
  Weight: 85 kg

DRUGS (7)
  1. AVASTIN [Suspect]
     Indication: COLORECTAL CANCER METASTATIC
     Route: 042
     Dates: start: 20120406, end: 20120810
  2. AVASTIN [Suspect]
     Route: 042
     Dates: start: 20130326
  3. XELODA [Suspect]
     Indication: COLORECTAL CANCER METASTATIC
     Route: 065
  4. OXALIPLATIN [Suspect]
     Indication: COLORECTAL CANCER METASTATIC
     Route: 042
     Dates: start: 20120406, end: 20120810
  5. OXALIPLATIN [Suspect]
     Route: 042
     Dates: start: 20130326, end: 20130607
  6. FLUOROURACIL [Suspect]
     Indication: COLORECTAL CANCER METASTATIC
     Route: 042
     Dates: start: 20120406, end: 20120810
  7. FLUOROURACIL [Suspect]
     Route: 042
     Dates: start: 20130326, end: 20130607

REACTIONS (1)
  - Polyneuropathy [Recovering/Resolving]
